FAERS Safety Report 9722253 (Version 3)
Quarter: 2013Q4

REPORT INFORMATION
  Report Type: Spontaneous
  Country: JP (occurrence: JP)
  Receive Date: 20131202
  Receipt Date: 20131209
  Transmission Date: 20140711
  Serious: Yes (Hospitalization)
  Sender: FDA-Public Use
  Company Number: JP-JNJFOC-20131117060

PATIENT
  Age: 81 Year
  Sex: Female

DRUGS (4)
  1. ITRIZOLE [Suspect]
     Indication: PRODUCT USED FOR UNKNOWN INDICATION
     Route: 048
  2. ITRIZOLE [Suspect]
     Indication: PRODUCT USED FOR UNKNOWN INDICATION
     Route: 048
  3. METOLATE [Concomitant]
     Route: 048
  4. ADRENOCORTICAL HORMONE [Concomitant]
     Route: 065

REACTIONS (4)
  - Pneumonia [Recovering/Resolving]
  - Cerebral infarction [Unknown]
  - Pneumonia aspiration [Unknown]
  - Treatment noncompliance [Unknown]
